FAERS Safety Report 4540047-8 (Version None)
Quarter: 2004Q4

REPORT INFORMATION
  Report Type: 
  Country: None (occurrence: None)
  Receive Date: 20041223
  Receipt Date: 20041214
  Transmission Date: 20050328
  Serious: Yes (Hospitalization, Other)
  Sender: FDA-Public Use
  Company Number: HQWYE048017DEC04

PATIENT
  Age: 56 Year
  Sex: Female
  Weight: 82.5 kg

DRUGS (3)
  1. RAPAMUNE [Suspect]
     Indication: PROPHYLAXIS AGAINST TRANSPLANT REJECTION
     Dosage: 5 MG 1 X PER 1 DAY, ORAL
     Route: 048
     Dates: start: 20040930
  2. TACROLIMUS (TACROLIMUS) [Suspect]
     Indication: PROPHYLAXIS AGAINST TRANSPLANT REJECTION
     Dosage: 6 MG 2 X PER 1 DAY, ORAL
     Route: 048
     Dates: start: 20040903
  3. AGGRENOX [Concomitant]

REACTIONS (11)
  - ABDOMINAL PAIN LOWER [None]
  - COMPLICATIONS OF TRANSPLANTED KIDNEY [None]
  - GRAFT COMPLICATION [None]
  - HAEMATOCRIT DECREASED [None]
  - HAEMOGLOBIN DECREASED [None]
  - PAIN IN EXTREMITY [None]
  - PLATELET COUNT DECREASED [None]
  - POST PROCEDURAL PAIN [None]
  - PYELONEPHRITIS ACUTE [None]
  - RENAL HAEMATOMA [None]
  - WHITE BLOOD CELL COUNT DECREASED [None]
